FAERS Safety Report 18012651 (Version 1)
Quarter: 2020Q3

REPORT INFORMATION
  Report Type: Spontaneous
  Country: US (occurrence: US)
  Receive Date: 20200710
  Receipt Date: 20200710
  Transmission Date: 20201103
  Serious: Yes (Other)
  Sender: FDA-Public Use
  Company Number: None

PATIENT
  Age: 35 Year
  Sex: Female

DRUGS (22)
  1. ODEFSEY [Suspect]
     Active Substance: EMTRICITABINE\RILPIVIRINE HYDROCHLORIDE\TENOFOVIR ALAFENAMIDE FUMARATE
     Indication: HIV INFECTION
     Route: 048
     Dates: start: 20181206, end: 20200709
  2. BIKTARVY 50/200/25 [Concomitant]
  3. NOVOLOG [Concomitant]
     Active Substance: INSULIN ASPART
  4. HYDROCODONE/ACETAMINOPHEN 10?325MG [Concomitant]
     Active Substance: ACETAMINOPHEN\HYDROCODONE BITARTRATE
  5. HYDROXYZINE PAMOATE 25MG [Concomitant]
     Active Substance: HYDROXYZINE PAMOATE
  6. FUROSEMIDE 40MG [Concomitant]
     Active Substance: FUROSEMIDE
  7. CLINDAMYCIN 1% [Concomitant]
     Active Substance: CLINDAMYCIN
  8. DICYCLOMINE 20MG [Concomitant]
  9. METOCLOPRAMIDE 5MG [Concomitant]
     Active Substance: METOCLOPRAMIDE
  10. EPINEPHRINE 0.3MG [Concomitant]
  11. FAMOTIDINE 20MG [Concomitant]
     Active Substance: FAMOTIDINE
  12. FLUCONAZOLE 150MG [Concomitant]
     Active Substance: FLUCONAZOLE
  13. METRONIDAZOLE 500MG [Concomitant]
     Active Substance: METRONIDAZOLE
  14. ALPRAZOLAM 0.5MG [Concomitant]
     Active Substance: ALPRAZOLAM
  15. DEXILANT [Concomitant]
     Active Substance: DEXLANSOPRAZOLE
  16. ALBUTEROL HFA [Concomitant]
     Active Substance: ALBUTEROL SULFATE
  17. DESIPRAMINE 25MG [Concomitant]
  18. GLYCOPYRROLATE 1MG [Concomitant]
  19. LYRICA [Concomitant]
     Active Substance: PREGABALIN
  20. ALLOPURINOL 300MG [Concomitant]
     Active Substance: ALLOPURINOL
  21. AMITRIPTYLINE 25MG [Concomitant]
     Active Substance: AMITRIPTYLINE
  22. CYCLOBENZAPRINE 10MG [Concomitant]
     Active Substance: CYCLOBENZAPRINE

REACTIONS (2)
  - Gastric disorder [None]
  - Hepatic steatosis [None]

NARRATIVE: CASE EVENT DATE: 20200701
